FAERS Safety Report 11705620 (Version 1)
Quarter: 2015Q4

REPORT INFORMATION
  Report Type: Spontaneous
  Country: US (occurrence: US)
  Receive Date: 20151106
  Receipt Date: 20151106
  Transmission Date: 20160304
  Serious: Yes (Hospitalization)
  Sender: FDA-Public Use
  Company Number: US-FRESENIUS KABI-FK201505700

PATIENT
  Age: 17 Year
  Sex: Female

DRUGS (1)
  1. DOXYCYCLINE FOR INJECTION (MANUFACTURER UNKNOWN) [Suspect]
     Active Substance: DOXYCYCLINE
     Indication: ACNE
     Route: 065

REACTIONS (3)
  - Acute hepatic failure [Not Recovered/Not Resolved]
  - Acute kidney injury [Recovering/Resolving]
  - Haemolytic anaemia [Unknown]
